FAERS Safety Report 14964500 (Version 7)
Quarter: 2019Q2

REPORT INFORMATION
  Report Type: Report from Study
  Country: DE (occurrence: DE)
  Receive Date: 20180601
  Receipt Date: 20190408
  Transmission Date: 20190711
  Serious: Yes (Hospitalization, Other)
  Sender: FDA-Public Use
  Company Number: DE-MYLANLABS-2018M1035486

PATIENT
  Age: 15 Year
  Sex: Male
  Weight: 106 kg

DRUGS (21)
  1. PANTOPRAZOLE [Suspect]
     Active Substance: PANTOPRAZOLE
     Indication: STILL^S DISEASE
     Dosage: 80 MILLIGRAM
     Route: 065
     Dates: start: 20141204
  2. ETORICOXIB. [Concomitant]
     Active Substance: ETORICOXIB
     Dosage: UNK
     Route: 048
  3. FOLSAEURE [Concomitant]
     Active Substance: FOLIC ACID
     Indication: STILL^S DISEASE
     Dosage: 5 MILLIGRAM
     Route: 048
     Dates: start: 20141204
  4. OXCARBAZEPIN [Concomitant]
     Active Substance: OXCARBAZEPINE
     Dosage: 1200 MILLIGRAM
     Route: 065
     Dates: start: 20160915
  5. ROACTEMRA [Suspect]
     Active Substance: TOCILIZUMAB
     Indication: STILL^S DISEASE
     Dosage: DAILY DOSE: 640 MG MILLGRAM(S) EVERY 2 WEEKS
     Route: 042
     Dates: start: 20150428
  6. ROACTEMRA [Suspect]
     Active Substance: TOCILIZUMAB
     Dosage: DAILY DOSE: 640 MG MILLGRAM(S) EVERY 4 WEEKS
     Route: 042
     Dates: start: 20141217
  7. ARCOXIA [Concomitant]
     Active Substance: ETORICOXIB
     Indication: STILL^S DISEASE
     Dosage: DAILY DOSE: 90 MG MILLGRAM(S) EVERY DAYS
     Route: 048
  8. TOPIRAMAT [Concomitant]
     Active Substance: TOPIRAMATE
     Indication: EPILEPSY
     Dosage: DAILY DOSE: 200 MG MILLGRAM(S) EVERY DAYS
     Route: 048
  9. METHOTREXATE (METHOTREXATE SODIUM) [Suspect]
     Active Substance: METHOTREXATE SODIUM
     Indication: STILL^S DISEASE
     Dosage: DAILY DOSE: 20 MG MILLGRAM(S) EVERY WEEKS
     Route: 048
     Dates: start: 20141204
  10. ETORICOXIB. [Concomitant]
     Active Substance: ETORICOXIB
     Dosage: 90 MILLIGRAM, QD
     Route: 048
  11. DICLOFENAC [Suspect]
     Active Substance: DICLOFENAC
     Indication: STILL^S DISEASE
     Dosage: 100 MILLIGRAM, QD
     Route: 048
     Dates: start: 20141217, end: 20150113
  12. OXCARBAZEPIN [Concomitant]
     Active Substance: OXCARBAZEPINE
     Indication: EPILEPSY
     Dosage: 1500 MILLIGRAM
     Route: 048
     Dates: start: 20160908
  13. PANTOPRAZOLE [Suspect]
     Active Substance: PANTOPRAZOLE
     Indication: PROPHYLAXIS
     Dosage: 40 MILLIGRAM
     Route: 065
     Dates: start: 20150401
  14. PERAMPANEL [Concomitant]
     Active Substance: PERAMPANEL
     Indication: STILL^S DISEASE
     Dosage: 8 MILLIGRAM
     Route: 048
     Dates: start: 20160303
  15. VOLTAREN [Suspect]
     Active Substance: DICLOFENAC SODIUM
     Indication: STILL^S DISEASE
     Dosage: DAILY DOSE: 100 MG MILLGRAM(S) EVERY DAYS
     Route: 048
     Dates: start: 20141217, end: 20150113
  16. ROACTEMRA [Suspect]
     Active Substance: TOCILIZUMAB
     Dosage: 640 MILLIGRAM, Q2W(640 MG, Q2W )
     Route: 042
  17. OMEPRAZOL                          /00661201/ [Concomitant]
     Active Substance: OMEPRAZOLE
     Indication: STILL^S DISEASE
     Dosage: UNK
     Route: 048
     Dates: start: 20141217
  18. PREDNISON [Suspect]
     Active Substance: PREDNISONE
     Indication: STILL^S DISEASE
     Dosage: 7.5 MILLIGRAM
     Route: 065
     Dates: start: 20150428
  19. ETORICOXIB. [Concomitant]
     Active Substance: ETORICOXIB
     Indication: STILL^S DISEASE
     Dosage: 90 MILLIGRAM, QD
     Route: 048
     Dates: start: 20160403
  20. FOLIC ACID. [Concomitant]
     Active Substance: FOLIC ACID
     Indication: STILL^S DISEASE
     Dosage: 5 MILLIGRAM
     Route: 048
  21. FOLIC ACID. [Concomitant]
     Active Substance: FOLIC ACID
     Dosage: UNK

REACTIONS (8)
  - Pneumonia aspiration [Recovered/Resolved]
  - Sinusitis [Recovered/Resolved]
  - Seizure [Recovered/Resolved]
  - Craniocerebral injury [Unknown]
  - Otitis media [Recovered/Resolved]
  - Fall [Unknown]
  - Hand fracture [Unknown]
  - Epilepsy [Recovered/Resolved]

NARRATIVE: CASE EVENT DATE: 20150417
